FAERS Safety Report 18516838 (Version 1)
Quarter: 2020Q4

REPORT INFORMATION
  Report Type: Spontaneous
  Country: US (occurrence: US)
  Receive Date: 20201118
  Receipt Date: 20201118
  Transmission Date: 20210114
  Serious: Yes (Hospitalization, Other)
  Sender: FDA-Public Use
  Company Number: US-SUN PHARMACEUTICAL INDUSTRIES LTD-2020R1-267966

PATIENT
  Age: 21 Year
  Sex: Female

DRUGS (5)
  1. DIGOXIN. [Suspect]
     Active Substance: DIGOXIN
     Indication: HYDROPS FOETALIS
     Dosage: 0.25 MILLIGRAM, TID PER DAY
     Route: 048
  2. DIGOXIN. [Suspect]
     Active Substance: DIGOXIN
     Dosage: 0.25 MILLIGRAM, BID, PER DAY
     Route: 048
  3. URSODIOL. [Suspect]
     Active Substance: URSODIOL
     Indication: CHOLESTASIS
     Dosage: 300 MILLIGRAM, BID
     Route: 065
  4. FLECAINIDE ACETATE. [Suspect]
     Active Substance: FLECAINIDE ACETATE
     Indication: HYDROPS FOETALIS
     Dosage: 100 MILLIGRAM, BID
     Route: 048
  5. BETAMETHASONE. [Suspect]
     Active Substance: BETAMETHASONE
     Indication: MATERNAL THERAPY TO ENHANCE FOETAL LUNG MATURITY
     Dosage: UNK
     Route: 030

REACTIONS (3)
  - Hepatic enzyme increased [Unknown]
  - Costochondritis [Unknown]
  - Exposure during pregnancy [Unknown]
